FAERS Safety Report 8160276-4 (Version None)
Quarter: 2012Q1

REPORT INFORMATION
  Report Type: 
  Country: None (occurrence: None)
  Receive Date: 20120223
  Receipt Date: 20120223
  Transmission Date: 20120608
  Serious: Yes (Other)
  Sender: FDA-Public Use
  Company Number: None

PATIENT
  Age: 6 Month
  Sex: Female
  Weight: 6.8038 kg

DRUGS (1)
  1. OMNICEF [Suspect]
     Indication: PNEUMONIA
     Dosage: 5ML
     Route: 048
     Dates: start: 20120210, end: 20120220

REACTIONS (2)
  - TONGUE DISORDER [None]
  - DIARRHOEA [None]
